FAERS Safety Report 16204141 (Version 2)
Quarter: 2019Q2

REPORT INFORMATION
  Report Type: Spontaneous
  Country: FR (occurrence: FR)
  Receive Date: 20190416
  Receipt Date: 20190501
  Transmission Date: 20190711
  Serious: Yes (Other)
  Sender: FDA-Public Use
  Company Number: FR-MYLANLABS-2019M1036263

PATIENT
  Age: 83 Year
  Sex: Male

DRUGS (3)
  1. CLOZAPINE MYLAN 25 MG, TABLETTEN [Suspect]
     Active Substance: CLOZAPINE
     Indication: PRODUCT USED FOR UNKNOWN INDICATION
     Dosage: 0.5 DOSAGE FORM, QD
     Dates: start: 20190227
  2. CLOZAPINE MYLAN 25 MG, TABLETTEN [Suspect]
     Active Substance: CLOZAPINE
     Dosage: 0.5 DOSAGE FORM, AM
     Dates: start: 2019
  3. CLOZAPINE MYLAN 25 MG, TABLETTEN [Suspect]
     Active Substance: CLOZAPINE
     Dosage: 0.5 DOSAGE FORM, PM
     Dates: start: 2019

REACTIONS (7)
  - Brief psychotic disorder with marked stressors [Unknown]
  - White blood cell count increased [Unknown]
  - Plasma cells increased [Unknown]
  - Oedema peripheral [Unknown]
  - Drug ineffective [Unknown]
  - White blood cell count decreased [Unknown]
  - Hallucination [Unknown]

NARRATIVE: CASE EVENT DATE: 2019
